FAERS Safety Report 6347408-5 (Version None)
Quarter: 2009Q3

REPORT INFORMATION
  Report Type: 
  Country: None (occurrence: None)
  Receive Date: 20090910
  Receipt Date: 20090903
  Transmission Date: 20100115
  Serious: Yes (Other)
  Sender: FDA-Public Use
  Company Number: AU-AVENTIS-200919985GDDC

PATIENT
  Sex: Female

DRUGS (3)
  1. ARAVA [Suspect]
     Indication: RHEUMATOID ARTHRITIS
     Route: 048
     Dates: start: 20090301
  2. CORTICOSTEROIDS [Concomitant]
     Dosage: DOSE: UNK
  3. METHOTREXATE [Concomitant]
     Dosage: DOSE: UNK

REACTIONS (2)
  - ANAPHYLACTIC REACTION [None]
  - FOOD ALLERGY [None]
